FAERS Safety Report 15725599 (Version 1)
Quarter: 2018Q4

REPORT INFORMATION
  Report Type: Spontaneous
  Country: US (occurrence: US)
  Receive Date: 20181215
  Receipt Date: 20181215
  Transmission Date: 20190205
  Serious: No
  Sender: FDA-Public Use
  Company Number: US-DSJP-DSU-2017-142121

PATIENT

DRUGS (2)
  1. BENICAR HCT [Suspect]
     Active Substance: HYDROCHLOROTHIAZIDE\OLMESARTAN MEDOXOMIL
     Indication: HYPERTENSION
     Dosage: 20-12.5MG, QD
     Route: 048
     Dates: start: 20061204, end: 20170811
  2. BENICAR [Suspect]
     Active Substance: OLMESARTAN MEDOXOMIL
     Indication: HYPERTENSION
     Dosage: 40 MG, QD
     Dates: start: 20061204, end: 20170811

REACTIONS (6)
  - Sprue-like enteropathy [Recovering/Resolving]
  - Hiatus hernia [Unknown]
  - Clostridium difficile infection [Unknown]
  - Haemorrhoids [Unknown]
  - Gastrooesophageal reflux disease [Not Recovered/Not Resolved]
  - Proctalgia [Unknown]

NARRATIVE: CASE EVENT DATE: 2006
